FAERS Safety Report 17310385 (Version 1)
Quarter: 2020Q1

REPORT INFORMATION
  Report Type: Spontaneous
  Country: US (occurrence: US)
  Receive Date: 20200123
  Receipt Date: 20200123
  Transmission Date: 20200409
  Serious: No
  Sender: FDA-Public Use
  Company Number: US-ROCHE-2416383

PATIENT
  Sex: Female
  Weight: 97.61 kg

DRUGS (2)
  1. RITUXAN [Suspect]
     Active Substance: RITUXIMAB
     Indication: NON-HODGKIN^S LYMPHOMA
     Dosage: 2 SERIES ;ONGOING: NO
     Route: 065
     Dates: start: 2008
  2. METHOTREXATE. [Concomitant]
     Active Substance: METHOTREXATE

REACTIONS (5)
  - Respiratory disorder [Unknown]
  - Rash [Unknown]
  - Inflammation [Unknown]
  - Temporal arteritis [Not Recovered/Not Resolved]
  - Weight increased [Unknown]
